FAERS Safety Report 10984935 (Version 2)
Quarter: 2015Q2

REPORT INFORMATION
  Report Type: Report from Study
  Country: BE (occurrence: BE)
  Receive Date: 20150403
  Receipt Date: 20150623
  Transmission Date: 20150821
  Serious: Yes (Disabling, Other)
  Sender: FDA-Public Use
  Company Number: BE-ABBVIE-13P-013-1152905-00

PATIENT
  Sex: Female

DRUGS (15)
  1. DUODOPA [Suspect]
     Active Substance: CARBIDOPA\LEVODOPA
     Dosage: DOSE:UNKNOWN
     Route: 050
  2. DUODOPA [Suspect]
     Active Substance: CARBIDOPA\LEVODOPA
     Indication: PARKINSON^S DISEASE
     Dosage: UNKNOWN
     Route: 050
     Dates: start: 20071116, end: 20090114
  3. DUODOPA [Suspect]
     Active Substance: CARBIDOPA\LEVODOPA
     Dosage: AM = 0.5 ML, CD = 2.2 ML/H DURING 16H, EXTRA DOSE =1.6 ML,ND = 2.2 ML/H DURING 8H
     Route: 050
     Dates: start: 20140819, end: 20141204
  4. PROLOPA HBS [Concomitant]
     Indication: PARKINSON^S DISEASE
     Dosage: AT NIGHT
  5. DUODOPA [Suspect]
     Active Substance: CARBIDOPA\LEVODOPA
     Dosage: AM DOSE 5ML, CD 2.5ML/H (AM) +3.2ML.H (PM) DURING 16HRS, IN TOTAL, ED 2ML
     Route: 050
     Dates: start: 20090114, end: 20100105
  6. DUODOPA [Suspect]
     Active Substance: CARBIDOPA\LEVODOPA
     Dosage: DOSAGE CONTINUOUSLY MONITORED +ADJUSTED
     Route: 050
     Dates: start: 20100105, end: 20130919
  7. DUODOPA [Suspect]
     Active Substance: CARBIDOPA\LEVODOPA
     Dosage: AM DOSE: 0.5ML, CONTIN.DOSE: 2.5ML/H FOR 16 HRS, 2.7ML/H FOR 8HRS, ED:1.5ML
     Route: 050
     Dates: start: 20131217, end: 20140227
  8. DUODOPA [Suspect]
     Active Substance: CARBIDOPA\LEVODOPA
     Dosage: AM 0.5 ML, CD 2.3 ML/H IN 16H,ED 16 ML, PM 2.3 ML/H IN 8H
     Route: 050
     Dates: start: 20140819, end: 20140819
  9. DUODOPA [Suspect]
     Active Substance: CARBIDOPA\LEVODOPA
     Dosage: AM: 0.5 ML, CD:2.2 ML/H (UPPER LIMIT 2.5 ML/H)/16H, ED:1.1 ML, ND: 2.2 ML/H/8H
     Route: 050
     Dates: start: 20150615
  10. LYSANXIA [Concomitant]
     Active Substance: PRAZEPAM
     Indication: PRODUCT USED FOR UNKNOWN INDICATION
  11. DUODOPA [Suspect]
     Active Substance: CARBIDOPA\LEVODOPA
     Dosage: AM DOSE 0.5ML, CD 2.7ML/H DURING 16HRS, ND 2.7ML/H DURING 8HRS,ED 1.5ML
     Route: 050
     Dates: start: 20130919, end: 20131217
  12. DUODOPA [Suspect]
     Active Substance: CARBIDOPA\LEVODOPA
     Dosage: AM=0.5 ML, CD=2.4 ML/H DURING 16H,ED=1.6 ML,ND=2.4 ML/H DURING 8H
     Route: 050
     Dates: start: 20140523, end: 20140819
  13. DUODOPA [Suspect]
     Active Substance: CARBIDOPA\LEVODOPA
     Route: 048
     Dates: start: 20141204
  14. DUODOPA [Suspect]
     Active Substance: CARBIDOPA\LEVODOPA
     Dosage: AM: 0.5 ML, CD: 2.2 ML/H (UPPER LIMIT 2.5 ML/H)/16H, ED: 1.6 ML, ND:  2.2 ML/H/8H
     Route: 050
     Dates: end: 20150615
  15. DUODOPA [Suspect]
     Active Substance: CARBIDOPA\LEVODOPA
     Dosage: AM DOSE: 0.5ML, CONTIN.DOSE: 2.5ML/H FOR 16 HRS, 2.5ML/H FOR 8HRS, ED:1.6ML
     Route: 050
     Dates: start: 20140227, end: 20140523

REACTIONS (10)
  - Hallucination [Unknown]
  - Fear [Unknown]
  - Confusional state [Not Recovered/Not Resolved]
  - Wheelchair user [Unknown]
  - Muscle spasms [Unknown]
  - Muscle spasms [Not Recovered/Not Resolved]
  - On and off phenomenon [Unknown]
  - Hip fracture [Unknown]
  - Dyskinesia [Unknown]
  - Incorrect dose administered [Unknown]

NARRATIVE: CASE EVENT DATE: 2010
